FAERS Safety Report 4941098-1 (Version None)
Quarter: 2006Q1

REPORT INFORMATION
  Report Type: 
  Country: None (occurrence: None)
  Receive Date: 20060310
  Receipt Date: 20060310
  Transmission Date: 20060701
  Serious: Yes (Hospitalization)
  Sender: FDA-Public Use
  Company Number: None

PATIENT
  Age: 63 Year
  Sex: Male
  Weight: 87.0906 kg

DRUGS (1)
  1. IBUPROFEN [Suspect]
     Dosage: 200 MG  4XDAY  PO
     Route: 048
     Dates: start: 20060116, end: 20060216

REACTIONS (6)
  - DIZZINESS [None]
  - FAECES DISCOLOURED [None]
  - GASTROINTESTINAL HAEMORRHAGE [None]
  - MELAENA [None]
  - PEPTIC ULCER [None]
  - UNEVALUABLE EVENT [None]
